FAERS Safety Report 6312701-9 (Version None)
Quarter: 2009Q3

REPORT INFORMATION
  Report Type: 
  Country: None (occurrence: None)
  Receive Date: 20090818
  Receipt Date: 20090810
  Transmission Date: 20100115
  Serious: Yes (Hospitalization, Other)
  Sender: FDA-Public Use
  Company Number: CO-ELI_LILLY_AND_COMPANY-CO200907006031

PATIENT
  Age: 43 Year
  Sex: Female

DRUGS (17)
  1. BYETTA [Suspect]
     Indication: TYPE 2 DIABETES MELLITUS
     Dosage: 5 UG, 2/D
     Route: 058
     Dates: start: 20090417
  2. METFORMIN [Concomitant]
     Dosage: 850 MG, 3/D
     Route: 048
  3. GLIBENCLAMIDE [Concomitant]
     Dosage: 5 MG, 3/D
     Route: 048
  4. ORLISTAT [Concomitant]
     Indication: OVERWEIGHT
     Dosage: UNK, UNKNOWN
     Route: 065
  5. GEMFIBROZIL [Concomitant]
     Indication: HYPERTRIGLYCERIDAEMIA
     Dosage: UNK, UNKNOWN
     Route: 065
  6. ASPIRIN [Concomitant]
     Indication: PROPHYLAXIS
     Dosage: UNK, UNKNOWN
     Route: 065
  7. FLUOXETINE [Concomitant]
     Indication: DEPRESSION
     Dosage: UNK, UNKNOWN
     Route: 065
  8. OMEPRAZOLE [Concomitant]
     Indication: GASTRITIS
     Dosage: UNK, UNKNOWN
     Route: 065
  9. LOSARTAN [Concomitant]
     Indication: HYPERTENSION
     Dosage: UNK, UNKNOWN
     Route: 065
  10. NIMODIPINE [Concomitant]
     Indication: HYPERTENSION
     Dosage: UNK, UNKNOWN
     Route: 065
  11. SALBUTAMOL [Concomitant]
     Indication: ASTHMA
     Dosage: UNK, UNKNOWN
     Route: 055
  12. BECLOMETASONE [Concomitant]
     Indication: ASTHMA
     Dosage: UNK, UNKNOWN
     Route: 055
  13. IPRATROPIUM BROMIDE [Concomitant]
     Indication: ASTHMA
     Dosage: UNK, UNKNOWN
     Route: 055
  14. LYRICA [Concomitant]
     Indication: NEUROPATHY PERIPHERAL
     Dosage: UNK, UNKNOWN
     Route: 065
  15. BACLOFEN [Concomitant]
     Indication: NEUROPATHY PERIPHERAL
     Dosage: 10 MG, UNKNOWN
     Route: 065
  16. IBUPROFEN [Concomitant]
     Indication: PAIN
     Dosage: UNK, AS NEEDED
     Route: 065
  17. TRAMAL /00599201/ [Concomitant]
     Indication: PAIN
     Dosage: UNK, AS NEEDED
     Route: 065

REACTIONS (8)
  - ASTHMA [None]
  - DIARRHOEA [None]
  - DIZZINESS [None]
  - HOSPITALISATION [None]
  - HYPOGLYCAEMIA [None]
  - HYPOPHAGIA [None]
  - NAUSEA [None]
  - VOMITING [None]
